FAERS Safety Report 14426351 (Version 1)
Quarter: 2018Q1

REPORT INFORMATION
  Report Type: Spontaneous
  Country: US (occurrence: US)
  Receive Date: 20180123
  Receipt Date: 20180123
  Transmission Date: 20180509
  Serious: No
  Sender: FDA-Public Use
  Company Number: US-ROCHE-2006634

PATIENT
  Sex: Male
  Weight: 74.91 kg

DRUGS (3)
  1. INSULIN [Suspect]
     Active Substance: INSULIN NOS
     Indication: DIABETES MELLITUS
     Dosage: SLIDING SCALE INSULIN
     Route: 065
  2. OCREVUS [Suspect]
     Active Substance: OCRELIZUMAB
     Indication: MULTIPLE SCLEROSIS
     Route: 065
     Dates: start: 20171004
  3. INSULIN [Suspect]
     Active Substance: INSULIN NOS
     Dosage: 35 UNITS DAILY AT NIGHT
     Route: 065

REACTIONS (1)
  - Blood glucose increased [Unknown]
